FAERS Safety Report 4672810-7 (Version None)
Quarter: 2005Q2

REPORT INFORMATION
  Report Type: 
  Country: None (occurrence: None)
  Receive Date: 20050523
  Receipt Date: 20050510
  Transmission Date: 20051028
  Serious: Yes (Hospitalization, Other)
  Sender: FDA-Public Use
  Company Number: 2005073373

PATIENT
  Age: 57 Year
  Sex: Female

DRUGS (10)
  1. NEURONTIN [Suspect]
     Indication: PAIN
     Dosage: 900 MG (900 MG, 1 IN 1 D), ORAL
     Route: 048
     Dates: end: 20050422
  2. PIROXICAM [Suspect]
     Indication: ARTHRITIS
     Dosage: 20 MG (20 MG, 1 IN 1 D), ORAL
     Route: 048
     Dates: end: 20050422
  3. ANTIBIOTICS (ANTIBIOTICS) [Suspect]
     Indication: ILL-DEFINED DISORDER
  4. SALBUTAMOL (SALBUTAMOL) [Concomitant]
  5. ESTRADIOL [Concomitant]
  6. DIHYDROCODEINE (DIHYDROCODEINE) [Concomitant]
  7. OMEPRAZOLE [Concomitant]
  8. METHOCARBAMOL [Concomitant]
  9. BECLOMETHASONE (BECLOMETASONE) [Concomitant]
  10. AMITRIPTYLINE HCL [Concomitant]

REACTIONS (5)
  - DRUG LEVEL INCREASED [None]
  - DYSARTHRIA [None]
  - DYSKINESIA [None]
  - LOWER RESPIRATORY TRACT INFECTION [None]
  - RENAL FAILURE ACUTE [None]
